FAERS Safety Report 7087161-3 (Version None)
Quarter: 2010Q4

REPORT INFORMATION
  Report Type: 
  Country: None (occurrence: None)
  Receive Date: 20101106
  Receipt Date: 20101011
  Transmission Date: 20110411
  Serious: No
  Sender: FDA-Public Use
  Company Number: US-WYE-H18520910

PATIENT
  Age: 84 Year
  Sex: Female

DRUGS (1)
  1. CORDARONE [Suspect]
     Dosage: UNSPECIFIED

REACTIONS (1)
  - HYPOAESTHESIA [None]
